FAERS Safety Report 16474598 (Version 1)
Quarter: 2019Q3

REPORT INFORMATION
  Report Type: Spontaneous
  Country: US (occurrence: US)
  Receive Date: 20190624
  Receipt Date: 20190624
  Transmission Date: 20191004
  Serious: Yes (Other)
  Sender: FDA-Public Use
  Company Number: None

PATIENT
  Age: 92 Year
  Sex: Male
  Weight: 69.75 kg

DRUGS (16)
  1. LATANOPROST-TIMOLOL [Concomitant]
  2. MEMANTINE. [Concomitant]
     Active Substance: MEMANTINE
  3. METOPROLOL. [Concomitant]
     Active Substance: METOPROLOL
  4. PREDNISONE. [Concomitant]
     Active Substance: PREDNISONE
  5. VITAMIN B6 [Concomitant]
     Active Substance: PYRIDOXINE HYDROCHLORIDE
  6. ABIRATERONE. [Suspect]
     Active Substance: ABIRATERONE ACETATE
     Indication: PROSTATE CANCER
     Route: 048
     Dates: start: 20190411, end: 20190606
  7. ATORVASTATIN [Concomitant]
     Active Substance: ATORVASTATIN
  8. PLAVIX [Concomitant]
     Active Substance: CLOPIDOGREL BISULFATE
  9. HYDOCHLOROTHIAZIDE [Concomitant]
  10. SUPER BETA PROSTATE [Concomitant]
     Active Substance: DIETARY SUPPLEMENT
  11. GABAPENTIN. [Concomitant]
     Active Substance: GABAPENTIN
  12. NITROGLYCERIN. [Concomitant]
     Active Substance: NITROGLYCERIN
  13. AMLODIPINE [Concomitant]
     Active Substance: AMLODIPINE BESYLATE
  14. TIMOLOL. [Concomitant]
     Active Substance: TIMOLOL
  15. CALCITRIOL. [Concomitant]
     Active Substance: CALCITRIOL
  16. TAMSULOSIN [Concomitant]
     Active Substance: TAMSULOSIN

REACTIONS (1)
  - Blood urine present [None]

NARRATIVE: CASE EVENT DATE: 20190613
